FAERS Safety Report 17060737 (Version 2)
Quarter: 2019Q4

REPORT INFORMATION
  Report Type: Spontaneous
  Country: TW (occurrence: TW)
  Receive Date: 20191121
  Receipt Date: 20191226
  Transmission Date: 20200122
  Serious: Yes (Other)
  Sender: FDA-Public Use
  Company Number: TW-PFIZER INC-2019310467

PATIENT
  Age: 58 Year
  Sex: Female

DRUGS (6)
  1. SUTENT [Suspect]
     Active Substance: SUNITINIB MALATE
     Dosage: 37.5 MG, CYCLIC (37.5MG/QD, ONCE A DAY, 2 WEEKS ON AND 1 WEEK OFF)
     Route: 048
     Dates: start: 20190808, end: 201908
  2. SUTENT [Suspect]
     Active Substance: SUNITINIB MALATE
     Indication: RENAL CELL CARCINOMA
     Dosage: 50 MG, CYCLIC (50MG/QD, ONCE A DAY, 2 WEEKS ON AND 1 WEEK OFF)
     Route: 048
     Dates: start: 20190622, end: 2019
  3. SUTENT [Suspect]
     Active Substance: SUNITINIB MALATE
     Dosage: 25 MG, CYCLIC (25MG/QD, ONCE A DAY, 2 WEEKS ON AND 1 WEEK OFF)
     Route: 048
     Dates: start: 20190801, end: 201908
  4. SUTENT [Suspect]
     Active Substance: SUNITINIB MALATE
     Dosage: UNK
     Route: 048
     Dates: end: 201911
  5. SUTENT [Suspect]
     Active Substance: SUNITINIB MALATE
     Dosage: 4 DF, CYCLIC (50MG/QD, ONCE A DAY, 2 WEEKS ON AND 1 WEEK OFF)
     Route: 048
     Dates: end: 201910
  6. SUTENT [Suspect]
     Active Substance: SUNITINIB MALATE
     Dosage: 4 DF, CYCLIC  (CAPSULES, 50MG/QD, ONCE A DAY, 2 WEEKS ON AND 1 WEEK OFF)
     Route: 048
     Dates: start: 20190821, end: 201908

REACTIONS (12)
  - Impaired healing [Recovered/Resolved]
  - Hypogeusia [Recovering/Resolving]
  - Paraesthesia oral [Unknown]
  - Inflammation of wound [Unknown]
  - Palmar-plantar erythrodysaesthesia syndrome [Recovering/Resolving]
  - Blood pressure diastolic increased [Recovered/Resolved]
  - Dry mouth [Recovering/Resolving]
  - Dry skin [Recovering/Resolving]
  - Mouth ulceration [Recovering/Resolving]
  - Glossodynia [Recovering/Resolving]
  - Skin exfoliation [Recovering/Resolving]
  - Paraesthesia [Recovering/Resolving]

NARRATIVE: CASE EVENT DATE: 2019
